FAERS Safety Report 7512405-0 (Version None)
Quarter: 2011Q2

REPORT INFORMATION
  Report Type: 
  Country: None (occurrence: None)
  Receive Date: 20110531
  Receipt Date: 20110524
  Transmission Date: 20111010
  Serious: Yes (Other)
  Sender: FDA-Public Use
  Company Number: US-SANOFI-AVENTIS-2011SA028642

PATIENT
  Age: 78 Year
  Sex: Female
  Weight: 58.05 kg

DRUGS (9)
  1. MULTAQ [Suspect]
     Indication: ATRIAL FIBRILLATION
     Route: 065
     Dates: start: 20101209, end: 20110201
  2. CARVEDILOL [Concomitant]
     Dates: start: 20110101
  3. RAMIPRIL [Concomitant]
     Dates: end: 20110201
  4. CARVEDILOL [Concomitant]
     Dates: end: 20110201
  5. SIMVASTATIN [Concomitant]
  6. RAMIPRIL [Concomitant]
     Dates: start: 20110101
  7. SPIRONOLACTONE [Concomitant]
     Indication: CARDIOMEGALY
  8. WARFARIN SODIUM [Concomitant]
  9. FUROSEMIDE [Concomitant]
     Indication: CARDIOMEGALY

REACTIONS (14)
  - COUGH [None]
  - HYPOTENSION [None]
  - ASTHENIA [None]
  - BLOOD AMYLASE INCREASED [None]
  - DIARRHOEA [None]
  - BLOOD BILIRUBIN INCREASED [None]
  - LIPASE INCREASED [None]
  - ORTHOPNOEA [None]
  - MUSCULOSKELETAL PAIN [None]
  - EPIGASTRIC DISCOMFORT [None]
  - DECREASED APPETITE [None]
  - HEPATOCELLULAR INJURY [None]
  - NAUSEA [None]
  - CONSTIPATION [None]
